FAERS Safety Report 8889900 (Version 2)
Quarter: 2012Q4

REPORT INFORMATION
  Report Type: Report from Study
  Country: US (occurrence: US)
  Receive Date: 20121107
  Receipt Date: 20121108
  Transmission Date: 20130627
  Serious: Yes (Hospitalization, Disabling)
  Sender: FDA-Public Use
  Company Number: US-JNJFOC-20121100982

PATIENT
  Sex: Male
  Weight: 48.9 kg

DRUGS (7)
  1. REMICADE [Suspect]
     Indication: INFLAMMATORY BOWEL DISEASE
     Route: 042
     Dates: start: 20110830
  2. REMICADE [Suspect]
     Indication: INFLAMMATORY BOWEL DISEASE
     Route: 042
     Dates: end: 20111025
  3. REMICADE [Suspect]
     Indication: INFLAMMATORY BOWEL DISEASE
     Route: 042
     Dates: start: 20101205
  4. FLAGYL [Suspect]
     Indication: CLOSTRIDIAL INFECTION
  5. HUMIRA [Concomitant]
     Dates: start: 201210
  6. HUMIRA [Concomitant]
     Dates: start: 20111111
  7. POLYETHYLENE GLYCOL [Concomitant]

REACTIONS (2)
  - Pancreatitis [Recovered/Resolved]
  - Clostridium difficile infection [Recovered/Resolved]
